FAERS Safety Report 7235032-1 (Version None)
Quarter: 2011Q1

REPORT INFORMATION
  Report Type: 
  Country: None (occurrence: None)
  Receive Date: 20110120
  Receipt Date: 20110110
  Transmission Date: 20110831
  Serious: Yes (Life-Threatening)
  Sender: FDA-Public Use
  Company Number: SE-SANOFI-AVENTIS-2010SA066291

PATIENT
  Sex: Male

DRUGS (6)
  1. ENALAPRIL [Concomitant]
  2. MULTAQ [Suspect]
     Indication: ATRIAL FIBRILLATION
     Route: 048
     Dates: start: 20100917
  3. WARAN [Concomitant]
  4. AMLODIPINE BESYLATE [Concomitant]
     Route: 065
  5. CORDARONE [Concomitant]
     Route: 048
  6. SIMVASTATIN [Concomitant]
     Route: 065

REACTIONS (5)
  - CARDIAC ARREST [None]
  - ATRIOVENTRICULAR BLOCK FIRST DEGREE [None]
  - OFF LABEL USE [None]
  - VENTRICULAR TACHYARRHYTHMIA [None]
  - VENTRICULAR EXTRASYSTOLES [None]
